FAERS Safety Report 9116400 (Version 1)
Quarter: 2013Q1

REPORT INFORMATION
  Report Type: Spontaneous
  Country: US (occurrence: US)
  Receive Date: 20130225
  Receipt Date: 20130225
  Transmission Date: 20140127
  Serious: No
  Sender: FDA-Public Use
  Company Number: US-ENDO PHARMACEUTICALS INC.-FORT20110103

PATIENT
  Age: 42 None
  Sex: Male
  Weight: 79.45 kg

DRUGS (1)
  1. FORTESTA [Suspect]
     Indication: BLOOD TESTOSTERONE DECREASED
     Route: 061
     Dates: start: 20111102

REACTIONS (8)
  - Insomnia [Not Recovered/Not Resolved]
  - Adverse event [Unknown]
  - Nightmare [Unknown]
  - Fall [Recovered/Resolved]
  - Musculoskeletal chest pain [Not Recovered/Not Resolved]
  - Migraine [Recovering/Resolving]
  - Nausea [Unknown]
  - Abdominal pain [Unknown]
